FAERS Safety Report 19416443 (Version 4)
Quarter: 2022Q3

REPORT INFORMATION
  Report Type: Spontaneous
  Country: BR (occurrence: BR)
  Receive Date: 20210614
  Receipt Date: 20220914
  Transmission Date: 20221026
  Serious: Yes (Hospitalization)
  Sender: FDA-Public Use
  Company Number: BR-BOEHRINGERINGELHEIM-2021-BI-107013

PATIENT
  Age: 68 Year
  Sex: Female
  Weight: 93 kg

DRUGS (4)
  1. LINAGLIPTIN [Suspect]
     Active Substance: LINAGLIPTIN
     Indication: Type 2 diabetes mellitus
     Dosage: AT 3 PM
     Route: 048
     Dates: start: 202001
  2. CHLORTHALIDONE [Concomitant]
     Active Substance: CHLORTHALIDONE
     Indication: Hypertension
     Dosage: IN THE MORNING
     Route: 048
     Dates: start: 2019
  3. CLARITIN [Concomitant]
     Active Substance: LORATADINE
     Indication: Rhinitis allergic
  4. CLARITIN [Concomitant]
     Active Substance: LORATADINE
     Dates: start: 20210318

REACTIONS (10)
  - COVID-19 [Recovered/Resolved]
  - Alopecia [Recovered/Resolved]
  - Blood glucose increased [Not Recovered/Not Resolved]
  - Drug ineffective [Not Recovered/Not Resolved]
  - Blood glucose increased [Not Recovered/Not Resolved]
  - Diabetes mellitus inadequate control [Unknown]
  - Malaise [Unknown]
  - Therapeutic product effect decreased [Unknown]
  - Diabetes mellitus [Unknown]
  - Psychiatric decompensation [Unknown]

NARRATIVE: CASE EVENT DATE: 20210101
